FAERS Safety Report 4572115-9 (Version None)
Quarter: 2005Q1

REPORT INFORMATION
  Report Type: 
  Country: None (occurrence: None)
  Receive Date: 20050202
  Receipt Date: 20050117
  Transmission Date: 20050727
  Serious: Yes (Death, Life-Threatening, Hospitalization, Other)
  Sender: FDA-Public Use
  Company Number: US_0407104399

PATIENT
  Age: 53 Year
  Sex: Male

DRUGS (13)
  1. HUMALOG [Suspect]
  2. HUMULIN-HUMAN INSULIN (RDNA) UNKNOWN FORMULATION (HU [Suspect]
  3. MICARDIS [Concomitant]
  4. COZAAR [Concomitant]
  5. FUROSEMIDE [Concomitant]
  6. ZAROXOLYN [Concomitant]
  7. ZOLOFT [Concomitant]
  8. PLAVIX [Concomitant]
  9. TOPROL-XL [Concomitant]
  10. ISOSORBIDE [Concomitant]
  11. SODIUM BICARBONATE IN PLASTIC CONTAINER [Concomitant]
  12. NEURONTIN [Concomitant]
  13. STADOL [Concomitant]

REACTIONS (20)
  - ANAEMIA [None]
  - ANOXIC ENCEPHALOPATHY [None]
  - ARTERIOVENOUS GRAFT THROMBOSIS [None]
  - ASPIRATION [None]
  - BLOOD PRESSURE DECREASED [None]
  - BRADYARRHYTHMIA [None]
  - BRONCHOSCOPY ABNORMAL [None]
  - CARDIAC ARREST [None]
  - CARDIAC FAILURE CONGESTIVE [None]
  - DIALYSIS [None]
  - FAECAL OCCULT BLOOD POSITIVE [None]
  - GASTRITIS [None]
  - HYPOCALCAEMIA [None]
  - METABOLIC ACIDOSIS [None]
  - PNEUMONIA [None]
  - PSEUDOMONAS INFECTION [None]
  - RENAL FAILURE CHRONIC [None]
  - RESPIRATORY FAILURE [None]
  - SEPSIS [None]
  - STAPHYLOCOCCAL INFECTION [None]
